FAERS Safety Report 7501065-0 (Version None)
Quarter: 2011Q2

REPORT INFORMATION
  Report Type: 
  Country: None (occurrence: None)
  Receive Date: 20110524
  Receipt Date: 20100609
  Transmission Date: 20111010
  Serious: No
  Sender: FDA-Public Use
  Company Number: US-NOVEN-ALL1-2010-03296

PATIENT

DRUGS (5)
  1. HUMALOG [Concomitant]
     Dosage: UNK IU, 4X/DAY:QID
     Route: 058
  2. TRILEPTAL [Concomitant]
     Dosage: UNK, UNKNOWN
     Route: 048
     Dates: start: 20010101
  3. DAYTRANA [Suspect]
     Dosage: 30 MG, 1X/DAY:QD
     Route: 062
     Dates: start: 20090101
  4. CLONIDINE [Concomitant]
     Dosage: UNK, UNKNOWN
     Route: 048
     Dates: start: 20010101
  5. LANTUS [Concomitant]
     Dosage: 19 IU, 1X/DAY:QD IN THE MORNING
     Route: 058

REACTIONS (4)
  - DRUG ADMINISTERED AT INAPPROPRIATE SITE [None]
  - OFF LABEL USE [None]
  - PRODUCT QUALITY ISSUE [None]
  - NO ADVERSE EVENT [None]
